FAERS Safety Report 23564875 (Version 1)
Quarter: 2024Q1

REPORT INFORMATION
  Report Type: Spontaneous
  Country: US (occurrence: US)
  Receive Date: 20240226
  Receipt Date: 20240226
  Transmission Date: 20240410
  Serious: Yes (Other)
  Sender: FDA-Public Use
  Company Number: US-BAYER-2024A025667

PATIENT
  Age: 54 Year
  Sex: Male

DRUGS (1)
  1. KERENDIA [Suspect]
     Active Substance: FINERENONE
     Dosage: 20 MG
     Dates: start: 20231019, end: 20231027

REACTIONS (5)
  - Loss of consciousness [None]
  - Blood pressure decreased [Recovered/Resolved]
  - Dizziness [None]
  - Visual impairment [None]
  - Vision blurred [Recovered/Resolved]

NARRATIVE: CASE EVENT DATE: 20231027
